FAERS Safety Report 9090900 (Version 1)
Quarter: 2013Q1

REPORT INFORMATION
  Report Type: Spontaneous
  Country: US (occurrence: US)
  Receive Date: 20130201
  Receipt Date: 20130201
  Transmission Date: 20140127
  Serious: Yes (Other)
  Sender: FDA-Public Use
  Company Number: US-ABBOTT-13P-163-1030412-00

PATIENT
  Sex: 0

DRUGS (12)
  1. HUMIRA [Suspect]
     Indication: CROHN^S DISEASE
  2. CIMZIA [Concomitant]
     Indication: PRODUCT USED FOR UNKNOWN INDICATION
  3. PREDNISONE [Concomitant]
     Indication: PRODUCT USED FOR UNKNOWN INDICATION
  4. ROWASA [Concomitant]
     Indication: PRODUCT USED FOR UNKNOWN INDICATION
  5. PENTASA [Concomitant]
     Indication: PRODUCT USED FOR UNKNOWN INDICATION
  6. 6-MP [Concomitant]
     Indication: PRODUCT USED FOR UNKNOWN INDICATION
  7. REMICADE [Concomitant]
     Indication: PRODUCT USED FOR UNKNOWN INDICATION
  8. ASACOL [Concomitant]
     Indication: PRODUCT USED FOR UNKNOWN INDICATION
  9. IMURAN [Concomitant]
     Indication: PRODUCT USED FOR UNKNOWN INDICATION
  10. FLAGYL [Concomitant]
     Indication: PRODUCT USED FOR UNKNOWN INDICATION
  11. CIPRO [Concomitant]
     Indication: PRODUCT USED FOR UNKNOWN INDICATION
  12. STELARA [Concomitant]
     Indication: CROHN^S DISEASE

REACTIONS (4)
  - Ileostomy [Unknown]
  - Stomatitis [Unknown]
  - Pyoderma gangrenosum [Unknown]
  - Oesophageal ulcer [Unknown]
